FAERS Safety Report 8461428-6 (Version None)
Quarter: 2012Q2

REPORT INFORMATION
  Report Type: 
  Country: None (occurrence: None)
  Receive Date: 20120323
  Receipt Date: 20111114
  Transmission Date: 20120825
  Serious: Yes (Other)
  Sender: FDA-Public Use
  Company Number: 163-21880-11102250

PATIENT
  Age: 64 Year
  Sex: Male

DRUGS (1)
  1. REVLIMID [Suspect]
     Indication: MULTIPLE MYELOMA
     Dosage: 5 MG, QOD ON DAYS 1-21 AS DIRECTED, PO
     Route: 048
     Dates: start: 20070627

REACTIONS (2)
  - FUNGAL INFECTION [None]
  - DRUG INEFFECTIVE [None]
